FAERS Safety Report 21350623 (Version 1)
Quarter: 2022Q3

REPORT INFORMATION
  Report Type: Spontaneous
  Country: US (occurrence: None)
  Receive Date: 20220919
  Receipt Date: 20220919
  Transmission Date: 20221027
  Serious: Yes (Other)
  Sender: FDA-Public Use
  Company Number: US-ROCHE-3180305

PATIENT
  Age: 66 Year
  Sex: Male
  Weight: 79.450 kg

DRUGS (2)
  1. ZELBORAF [Suspect]
     Active Substance: VEMURAFENIB
     Indication: Malignant melanoma
     Dosage: 3 WEEKS ON, ONE WEEK OFF
     Route: 065
     Dates: start: 20211105
  2. COTELLIC [Suspect]
     Active Substance: COBIMETINIB
     Indication: Malignant melanoma
     Dosage: 3 WEEKS ON, ONE WEEK OFF
     Route: 065
     Dates: start: 20211105

REACTIONS (1)
  - Brain neoplasm [Not Recovered/Not Resolved]

NARRATIVE: CASE EVENT DATE: 20220830
